FAERS Safety Report 4774645-3 (Version None)
Quarter: 2005Q3

REPORT INFORMATION
  Report Type: 
  Country: None (occurrence: None)
  Receive Date: 20050921
  Receipt Date: 20050915
  Transmission Date: 20060218
  Serious: Yes (Hospitalization)
  Sender: FDA-Public Use
  Company Number: SE-MERCK-0509SWE00007

PATIENT
  Age: 77 Year
  Sex: Female

DRUGS (9)
  1. COZAAR [Suspect]
     Indication: HYPERTENSION
     Route: 048
     Dates: end: 20050706
  2. SERTRALINE HYDROCHLORIDE [Concomitant]
     Route: 065
  3. LANSOPRAZOLE [Concomitant]
     Route: 065
  4. DIAZEPAM [Concomitant]
     Route: 065
  5. LEVOTHYROXINE SODIUM [Concomitant]
     Route: 065
  6. POTASSIUM CHLORIDE [Concomitant]
     Route: 065
  7. ATENOLOL [Concomitant]
     Route: 065
  8. FLUNITRAZEPAM [Concomitant]
     Route: 065
  9. KETOBEMIDONE HYDROCHLORIDE [Concomitant]
     Route: 065

REACTIONS (3)
  - BLOOD CREATININE INCREASED [None]
  - FLUID IMBALANCE [None]
  - HEADACHE [None]
